FAERS Safety Report 24201255 (Version 1)
Quarter: 2024Q3

REPORT INFORMATION
  Report Type: Spontaneous
  Country: US (occurrence: US)
  Receive Date: 20240812
  Receipt Date: 20240812
  Transmission Date: 20241017
  Serious: No
  Sender: PFIZER
  Company Number: US-PFIZER INC-202400233906

PATIENT
  Age: 66 Year
  Sex: Female

DRUGS (16)
  1. METHOTREXATE SODIUM [Suspect]
     Active Substance: METHOTREXATE SODIUM
     Dosage: 11 MG, DAILY
     Route: 048
     Dates: start: 20230811
  2. FAMOTIDINE [Concomitant]
     Active Substance: FAMOTIDINE
  3. LACTOBACILLUS ACIDOPHILUS [Concomitant]
     Active Substance: LACTOBACILLUS ACIDOPHILUS
  4. OMEPRAZOLE [Concomitant]
     Active Substance: OMEPRAZOLE
  5. BAYER ASPIRIN [Concomitant]
     Active Substance: ASPIRIN
     Dosage: LOW DOSE
  6. ZINC GLUCONATE [Concomitant]
     Active Substance: ZINC GLUCONATE
  7. VITAMIN C [Concomitant]
     Active Substance: ASCORBIC ACID
  8. VITAMINS NOS [Concomitant]
     Active Substance: VITAMINS
     Dosage: UNK, DAILY
  9. APPLE CIDER VINEGAR [MALUS SPP. VINEGAR EXTRACT] [Concomitant]
  10. CLIMARA [Concomitant]
     Active Substance: ESTRADIOL
  11. HERBALS\TURMERIC [Concomitant]
     Active Substance: HERBALS\TURMERIC
  12. B12 ACTIVE [Concomitant]
  13. EVENING PRIMROSE OIL [Concomitant]
     Active Substance: EVENING PRIMROSE OIL
  14. SYSTANE COMPLETE [Concomitant]
     Active Substance: PROPYLENE GLYCOL
  15. GLUCOSAMINE 1500 COMPLEX ADVANCED [Concomitant]
  16. VITAMIN D NOS [Concomitant]
     Active Substance: CHOLECALCIFEROL\ERGOCALCIFEROL

REACTIONS (2)
  - Neurological symptom [Unknown]
  - Memory impairment [Unknown]
